FAERS Safety Report 6788080 (Version 15)
Quarter: 2014Q1

REPORT INFORMATION
  Report Type: Spontaneous
  Country: US (occurrence: US)
  Receive Date: 20081015
  Receipt Date: 20140306
  Transmission Date: 20141002
  Serious: Yes (Death, Hospitalization, Other)
  Sender: FDA-Public Use
  Company Number: PHEH2008US09008

PATIENT
  Age: 83 Year
  Sex: Male

DRUGS (36)
  1. ZOMETA [Suspect]
     Indication: BONE DISORDER
     Dosage: 4 MG
     Route: 041
     Dates: start: 2005, end: 200705
  2. ZOMETA [Suspect]
     Indication: METASTASES TO PROSTATE
  3. ZOMETA [Suspect]
     Indication: NON-HODGKIN^S LYMPHOMA
  4. FOLIC ACID [Concomitant]
  5. VITAMIN B12 [Concomitant]
  6. COLACE [Concomitant]
  7. SIMVASTATIN [Concomitant]
  8. ALPRAZOLAM [Concomitant]
  9. AZITHROMYCIN [Concomitant]
  10. XANAX [Concomitant]
     Dosage: 2 MG, QD
  11. AUGMENTIN [Concomitant]
  12. HUMIBID [Concomitant]
  13. PROCRIT [Concomitant]
  14. TYLENOL [Concomitant]
  15. REGLAN [Concomitant]
  16. MARINOL [Concomitant]
  17. PRAVACHOL [Concomitant]
  18. ZOSYN [Concomitant]
  19. PHENERGAN [Concomitant]
  20. ASPIRIN [Concomitant]
  21. IRON [Concomitant]
  22. SENOKOT [Concomitant]
  23. ALBUTEROL [Concomitant]
  24. FRAGMIN [Concomitant]
  25. ENSURE PLUS [Concomitant]
  26. LASIX [Concomitant]
  27. MUCINEX [Concomitant]
  28. RADIATION THERAPY [Concomitant]
  29. RITUXAN [Concomitant]
  30. CYTOXAN [Concomitant]
  31. MITOXANTRONE [Concomitant]
  32. VINCRISTINE [Concomitant]
  33. PREDNISONE [Concomitant]
  34. VENTOLIN [Concomitant]
  35. SPIRIVA [Concomitant]
  36. DILAUDID [Concomitant]

REACTIONS (140)
  - Death [Fatal]
  - Pneumonia [Unknown]
  - Dyspnoea [Unknown]
  - Cough [Unknown]
  - Pyrexia [Unknown]
  - Rhinorrhoea [Unknown]
  - Urinary retention [Unknown]
  - Asthenia [Unknown]
  - Dizziness [Recovering/Resolving]
  - Osteonecrosis of jaw [Unknown]
  - Pain [Unknown]
  - Discomfort [Unknown]
  - Bone disorder [Unknown]
  - Deformity [Unknown]
  - Emotional distress [Unknown]
  - Anxiety [Unknown]
  - Neoplasm progression [Unknown]
  - Malignant neoplasm progression [Unknown]
  - Metastases to bone [Unknown]
  - Metastases to spleen [Unknown]
  - Metastases to pancreas [Unknown]
  - Metastases to liver [Unknown]
  - Neuropathy peripheral [Unknown]
  - Spinal compression fracture [Unknown]
  - Renal cyst [Unknown]
  - Gingival abscess [Unknown]
  - Renal failure chronic [Unknown]
  - Chronic obstructive pulmonary disease [Unknown]
  - Hypoxia [Unknown]
  - Pleurisy [Unknown]
  - Syncope [Unknown]
  - Cardiac failure congestive [Unknown]
  - Ejection fraction decreased [Unknown]
  - Aortic dilatation [Unknown]
  - Sinus tachycardia [Unknown]
  - Atrioventricular block first degree [Unknown]
  - Bundle branch block right [Unknown]
  - Bundle branch block left [Unknown]
  - Bifascicular block [Unknown]
  - Chest pain [Unknown]
  - Haematochezia [Unknown]
  - Mental status changes [Unknown]
  - Acute respiratory failure [Unknown]
  - Breath sounds abnormal [Unknown]
  - Osteitis [Unknown]
  - Cellulitis [Unknown]
  - Thrombocytopenia [Unknown]
  - Duodenal ulcer [Unknown]
  - Gastrooesophageal reflux disease [Unknown]
  - Vomiting [Unknown]
  - Nausea [Unknown]
  - Dehydration [Unknown]
  - Hypotension [Unknown]
  - Lordosis [Unknown]
  - Respiratory tract infection [Unknown]
  - Scoliosis [Unknown]
  - Haemolytic anaemia [Unknown]
  - Pancytopenia [Unknown]
  - Dyspnoea exertional [Unknown]
  - Aortic aneurysm [Unknown]
  - Peptic ulcer [Unknown]
  - Gastrointestinal haemorrhage [Unknown]
  - Tooth impacted [Unknown]
  - Vitamin B12 deficiency [Unknown]
  - Anaemia macrocytic [Unknown]
  - Musculoskeletal chest pain [Unknown]
  - Emphysema [Unknown]
  - Venous occlusion [Unknown]
  - Pulmonary hypertension [Unknown]
  - Oral candidiasis [Unknown]
  - Myelodysplastic syndrome [Unknown]
  - Deep vein thrombosis [Unknown]
  - Bronchiectasis [Unknown]
  - Leukocytosis [Unknown]
  - Sinus arrhythmia [Unknown]
  - Bronchomalacia [Unknown]
  - Tachypnoea [Unknown]
  - Dermatitis contact [Unknown]
  - Diverticulitis [Unknown]
  - Tendonitis [Unknown]
  - Face injury [Unknown]
  - Left ventricular dysfunction [Unknown]
  - Tricuspid valve incompetence [Unknown]
  - Dilatation ventricular [Unknown]
  - Deafness bilateral [Unknown]
  - Hypertension [Unknown]
  - Pulmonary embolism [Unknown]
  - Retinal vein occlusion [Unknown]
  - Constipation [Unknown]
  - Pulmonary congestion [Unknown]
  - Squamous cell carcinoma of skin [Unknown]
  - Second primary malignancy [Unknown]
  - Blood immunoglobulin G decreased [Unknown]
  - Hypogammaglobulinaemia [Unknown]
  - Local swelling [Unknown]
  - Fall [Unknown]
  - Pruritus [Unknown]
  - Arthritis [Unknown]
  - Oedema [Unknown]
  - Pain in extremity [Unknown]
  - Abdominal distension [Unknown]
  - Phlebitis [Unknown]
  - Pneumonitis [Unknown]
  - Intervertebral disc space narrowing [Unknown]
  - Intervertebral disc protrusion [Unknown]
  - Spinal column stenosis [Unknown]
  - Exostosis [Unknown]
  - Lung infiltration [Unknown]
  - Cerebral small vessel ischaemic disease [Unknown]
  - Aortic calcification [Unknown]
  - Ecchymosis [Unknown]
  - Brain cancer metastatic [Unknown]
  - Spinal osteoarthritis [Unknown]
  - Diverticulum [Unknown]
  - Aortic arteriosclerosis [Unknown]
  - Pleural fibrosis [Unknown]
  - Pathological fracture [Unknown]
  - Osteopenia [Unknown]
  - Lung consolidation [Unknown]
  - Mitral valve incompetence [Unknown]
  - Dilatation atrial [Unknown]
  - Faeces discoloured [Unknown]
  - Gastric ulcer haemorrhage [Unknown]
  - Bone deformity [Unknown]
  - Aortic disorder [Unknown]
  - Spinal cord compression [Unknown]
  - Mitral valve disease [Unknown]
  - Aortic valve disease [Unknown]
  - Hyperkalaemia [Unknown]
  - Loss of consciousness [Unknown]
  - Rales [Unknown]
  - Rhonchi [Unknown]
  - Arthralgia [Unknown]
  - Diarrhoea [Unknown]
  - Cardiomegaly [Unknown]
  - Splenic calcification [Unknown]
  - Ear infection [Unknown]
  - Sickle cell anaemia [Unknown]
  - Mass [Unknown]
  - Toothache [Unknown]
